FAERS Safety Report 10149456 (Version 1)
Quarter: 2014Q2

REPORT INFORMATION
  Report Type: Spontaneous
  Country: RU (occurrence: RU)
  Receive Date: 20140502
  Receipt Date: 20140502
  Transmission Date: 20141212
  Serious: Yes (Other)
  Sender: FDA-Public Use
  Company Number: RU-MILLENNIUM PHARMACEUTICALS, INC.-2014JNJ003176

PATIENT
  Sex: 0

DRUGS (11)
  1. VELCADE [Suspect]
     Indication: ACUTE MYELOID LEUKAEMIA
     Dosage: 1.3 MG/M2, UNK
     Route: 065
  2. FLUDARABINE [Concomitant]
     Dosage: 30 MG/M2, UNK
  3. CYCLOPHOSPHAMIDE [Concomitant]
     Dosage: 30 MG/M2, UNK
  4. DECITABINE [Concomitant]
     Dosage: 20 MG/M2, UNK
  5. VALPROIC ACID [Concomitant]
     Dosage: 25 MG/KG, UNK
  6. INTERLEUKIN-2 [Concomitant]
     Dosage: UNK
     Route: 065
  7. MELPHALAN [Concomitant]
     Route: 065
  8. ATG                                /00575401/ [Concomitant]
     Route: 065
  9. THIOTEPA [Concomitant]
     Route: 065
  10. TREOSULFAN [Concomitant]
     Route: 065
  11. CLOFARABINE [Concomitant]
     Route: 065

REACTIONS (2)
  - Bone marrow failure [Unknown]
  - Off label use [Unknown]
